FAERS Safety Report 14139598 (Version 1)
Quarter: 2017Q4

REPORT INFORMATION
  Report Type: Spontaneous
  Country: GB (occurrence: GB)
  Receive Date: 20171029
  Receipt Date: 20171029
  Transmission Date: 20180321
  Serious: Yes (Death, Other)
  Sender: FDA-Public Use
  Company Number: PHHY2017GB158243

PATIENT
  Age: 39 Year
  Sex: Male

DRUGS (7)
  1. METHYLPREDNISOLONE. [Suspect]
     Active Substance: METHYLPREDNISOLONE
     Indication: STEM CELL TRANSPLANT
     Route: 065
  2. MYCOPHENOLATE MOFETIL. [Suspect]
     Active Substance: MYCOPHENOLATE MOFETIL
     Indication: STEM CELL TRANSPLANT
     Route: 065
  3. ALEMTUZUMAB [Concomitant]
     Active Substance: ALEMTUZUMAB
     Indication: PRODUCT USED FOR UNKNOWN INDICATION
     Route: 065
  4. METHYLPREDNISOLONE. [Suspect]
     Active Substance: METHYLPREDNISOLONE
     Indication: IMMUNOSUPPRESSANT DRUG THERAPY
  5. MYCOPHENOLATE MOFETIL. [Suspect]
     Active Substance: MYCOPHENOLATE MOFETIL
     Indication: IMMUNOSUPPRESSANT DRUG THERAPY
  6. CICLOSPORIN [Suspect]
     Active Substance: CYCLOSPORINE
     Indication: IMMUNOSUPPRESSANT DRUG THERAPY
  7. CICLOSPORIN [Suspect]
     Active Substance: CYCLOSPORINE
     Indication: STEM CELL TRANSPLANT
     Route: 065

REACTIONS (5)
  - Chronic graft versus host disease [Unknown]
  - Lung infection [Unknown]
  - Gastrointestinal infection [Unknown]
  - Adenovirus infection [Fatal]
  - Urinary tract infection [Unknown]
